FAERS Safety Report 6794776-6 (Version None)
Quarter: 2010Q2

REPORT INFORMATION
  Report Type: 
  Country: None (occurrence: None)
  Receive Date: 20100625
  Receipt Date: 20100621
  Transmission Date: 20101027
  Serious: Yes (Life-Threatening)
  Sender: FDA-Public Use
  Company Number: JP-BRISTOL-MYERS SQUIBB COMPANY-15128390

PATIENT
  Age: 68 Year
  Sex: Male
  Weight: 55 kg

DRUGS (3)
  1. ERBITUX [Suspect]
     Indication: RECTAL CANCER
     Dosage: STRENGTH=5MG/ML
     Route: 042
     Dates: start: 20100517, end: 20100517
  2. IRINOTECAN [Concomitant]
     Indication: RECTAL CANCER
     Route: 042
     Dates: start: 20100517, end: 20100517
  3. DECADRON [Concomitant]
     Indication: PREMEDICATION
     Route: 042
     Dates: start: 20100517, end: 20100517

REACTIONS (1)
  - WHITE BLOOD CELL COUNT DECREASED [None]
